FAERS Safety Report 4794999-1 (Version None)
Quarter: 2005Q4

REPORT INFORMATION
  Report Type: 
  Country: None (occurrence: None)
  Receive Date: 20051007
  Receipt Date: 20051007
  Transmission Date: 20060501
  Serious: Yes (Hospitalization)
  Sender: FDA-Public Use
  Company Number: None

PATIENT
  Age: 35 Year
  Sex: Female
  Weight: 56.6996 kg

DRUGS (4)
  1. CYMBALTA [Suspect]
     Indication: PAIN
     Dosage: 60MG 1X PO
     Route: 048
     Dates: start: 20050501, end: 20050801
  2. LEVOTHROID [Concomitant]
  3. TYLENOL W/ CODEINE NO. 3 [Concomitant]
  4. TOPAMAX [Concomitant]

REACTIONS (11)
  - CONSTIPATION [None]
  - DIZZINESS [None]
  - DYSURIA [None]
  - FALL [None]
  - HEAD INJURY [None]
  - HYPOAESTHESIA [None]
  - IRRITABILITY [None]
  - MEMORY IMPAIRMENT [None]
  - MUSCLE SPASTICITY [None]
  - PALPITATIONS [None]
  - PARAESTHESIA [None]
